FAERS Safety Report 19357974 (Version 1)
Quarter: 2021Q2

REPORT INFORMATION
  Report Type: Spontaneous
  Country: DE (occurrence: DE)
  Receive Date: 20210531
  Receipt Date: 20210531
  Transmission Date: 20210717
  Serious: Yes (Hospitalization, Other)
  Sender: FDA-Public Use
  Company Number: DE-EMD SERONO-E2B_90083659

PATIENT
  Age: 26 Year
  Sex: Female

DRUGS (5)
  1. PUREGON                            /01348901/ [Suspect]
     Active Substance: FOLLITROPIN BETA
     Indication: ASSISTED REPRODUCTIVE TECHNOLOGY
     Dates: start: 20210325, end: 20210331
  2. PROLUTEX [Suspect]
     Active Substance: PROGESTERONE
     Indication: ASSISTED REPRODUCTIVE TECHNOLOGY
     Dates: start: 20210410, end: 20210426
  3. PUREGON                            /01348901/ [Suspect]
     Active Substance: FOLLITROPIN BETA
     Dates: start: 20210401, end: 20210406
  4. OVITRELLE [Suspect]
     Active Substance: CHORIOGONADOTROPIN ALFA
     Indication: ASSISTED REPRODUCTIVE TECHNOLOGY
     Dates: start: 20210407
  5. ORGALUTRAN [Suspect]
     Active Substance: GANIRELIX ACETATE
     Indication: ASSISTED REPRODUCTIVE TECHNOLOGY
     Dates: start: 20210401, end: 20210406

REACTIONS (1)
  - Uterine abscess [Recovered/Resolved]

NARRATIVE: CASE EVENT DATE: 20210412
